FAERS Safety Report 16643950 (Version 4)
Quarter: 2019Q3

REPORT INFORMATION
  Report Type: Spontaneous
  Country: US (occurrence: US)
  Receive Date: 20190729
  Receipt Date: 20190911
  Transmission Date: 20191004
  Serious: Yes (Other)
  Sender: FDA-Public Use
  Company Number: US-JNJFOC-20190723773

PATIENT
  Age: 53 Year
  Sex: Female
  Weight: 133.93 kg

DRUGS (3)
  1. DURAGESIC [Suspect]
     Active Substance: FENTANYL
     Indication: RHEUMATOID ARTHRITIS
     Route: 062
     Dates: start: 2014, end: 2019
  2. DURAGESIC [Suspect]
     Active Substance: FENTANYL
     Indication: INTERVERTEBRAL DISC DISORDER
     Route: 062
     Dates: start: 2019, end: 201906
  3. FENTANYL. [Suspect]
     Active Substance: FENTANYL
     Route: 062
     Dates: start: 201906, end: 201907

REACTIONS (11)
  - Feeling of body temperature change [Unknown]
  - Panic attack [Unknown]
  - Yawning [Unknown]
  - Performance status decreased [Not Recovered/Not Resolved]
  - Withdrawal syndrome [Recovering/Resolving]
  - Injury [Unknown]
  - Drug dependence [Unknown]
  - Therapeutic product effect decreased [Unknown]
  - Agitation [Not Recovered/Not Resolved]
  - Nervousness [Not Recovered/Not Resolved]
  - Pain [Not Recovered/Not Resolved]

NARRATIVE: CASE EVENT DATE: 201906
